FAERS Safety Report 5397127-7 (Version None)
Quarter: 2007Q3

REPORT INFORMATION
  Report Type: 
  Country: None (occurrence: None)
  Receive Date: 20070723
  Receipt Date: 20070712
  Transmission Date: 20080115
  Serious: Yes (Other)
  Sender: FDA-Public Use
  Company Number: 2007-00784

PATIENT
  Age: 57 Year
  Sex: Male
  Weight: 99.1 kg

DRUGS (36)
  1. VELCADE [Suspect]
     Indication: MULTIPLE MYELOMA
     Dosage: 3.50 MG
     Dates: start: 20061013, end: 20061016
  2. VELCADE [Suspect]
     Indication: MULTIPLE MYELOMA
     Dosage: 3.50 MG
     Dates: start: 20061020, end: 20070212
  3. VELCADE [Suspect]
     Indication: MULTIPLE MYELOMA
     Dosage: 3.50 MG
     Dates: start: 20050701, end: 20070301
  4. VELCADE [Suspect]
     Indication: MULTIPLE MYELOMA
     Dosage: 3.50 MG
     Dates: start: 20050727
  5. VELCADE [Suspect]
     Indication: MULTIPLE MYELOMA
     Dosage: 3.50 MG
     Dates: start: 20070215
  6. VELCADE [Suspect]
     Indication: MULTIPLE MYELOMA
     Dosage: 3.50 MG
     Dates: start: 20070219
  7. VELCADE [Suspect]
     Indication: MULTIPLE MYELOMA
     Dosage: 3.50 MG
     Dates: start: 20070222
  8. VELCADE [Suspect]
  9. VELCADE [Suspect]
  10. MELPHALAN(MELPHALAN) VIAL [Suspect]
     Indication: MULTIPLE MYELOMA
     Dates: start: 20050908
  11. MELPHALAN(MELPHALAN) VIAL [Suspect]
     Indication: MULTIPLE MYELOMA
     Dates: start: 20061116
  12. DEXAMETHASONE [Suspect]
     Indication: MULTIPLE MYELOMA
     Dosage: 20.00 MG, ORAL
     Dates: start: 20050701
  13. DEXAMETHASONE [Suspect]
     Indication: MULTIPLE MYELOMA
     Dosage: 20.00 MG, ORAL
     Dates: start: 20050727
  14. DEXAMETHASONE [Suspect]
     Indication: MULTIPLE MYELOMA
     Dosage: 20.00 MG, ORAL
     Dates: start: 20061030
  15. THALIDOMIDE [Suspect]
     Indication: MULTIPLE MYELOMA
     Dosage: 100.00 MG, ORAL, 50.00 MG, ORAL
     Route: 048
     Dates: end: 20060119
  16. THALIDOMIDE [Suspect]
     Indication: MULTIPLE MYELOMA
     Dosage: 100.00 MG, ORAL, 50.00 MG, ORAL
     Route: 048
     Dates: start: 20060119, end: 20060319
  17. THALIDOMIDE [Suspect]
     Indication: MULTIPLE MYELOMA
     Dosage: 100.00 MG, ORAL, 50.00 MG, ORAL
     Route: 048
     Dates: start: 20050701
  18. THALIDOMIDE [Suspect]
     Indication: MULTIPLE MYELOMA
     Dosage: 100.00 MG, ORAL, 50.00 MG, ORAL
     Route: 048
     Dates: start: 20050725
  19. CISPLATIN [Suspect]
     Indication: MULTIPLE MYELOMA
     Dates: start: 20050701
  20. CISPLATIN [Suspect]
     Indication: MULTIPLE MYELOMA
     Dates: start: 20050727
  21. DOXORUBICIN HCL [Suspect]
     Indication: MULTIPLE MYELOMA
     Dates: start: 20050701
  22. DOXORUBICIN HCL [Suspect]
     Indication: MULTIPLE MYELOMA
     Dates: start: 20050727
  23. CYCLOPHOSPHAMIDE [Suspect]
     Indication: MULTIPLE MYELOMA
     Dates: start: 20050701
  24. CYCLOPHOSPHAMIDE [Suspect]
     Indication: MULTIPLE MYELOMA
     Dates: start: 20050727
  25. ETOPOSIDE [Suspect]
     Indication: MULTIPLE MYELOMA
     Dates: start: 20050701
  26. ETOPOSIDE [Suspect]
     Indication: MULTIPLE MYELOMA
     Dates: start: 20050727
  27. HYDROCHLOROTHIAZIDE [Concomitant]
  28. ASPIRIN [Concomitant]
  29. LOVENOX [Concomitant]
  30. NEURONTIN [Concomitant]
  31. PLAVIX [Concomitant]
  32. LYRICA [Concomitant]
  33. AMITRIPTYLINE HCL [Concomitant]
  34. ZANTAC 150 [Concomitant]
  35. ACYCLOVIR [Concomitant]
  36. LEVAQUIN [Concomitant]

REACTIONS (4)
  - ACCIDENTAL OVERDOSE [None]
  - INCORRECT DOSE ADMINISTERED [None]
  - OEDEMA [None]
  - PERIPHERAL SENSORY NEUROPATHY [None]
